FAERS Safety Report 8596784 (Version 2)
Quarter: 2013Q2

REPORT INFORMATION
  Report Type: Spontaneous
  Country: US (occurrence: US)
  Receive Date: 20120605
  Receipt Date: 20130617
  Transmission Date: 20140414
  Serious: Yes (Hospitalization, Other)
  Sender: FDA-Public Use
  Company Number: US-ASTRAZENECA-2012SE35643

PATIENT
  Age: 50 Year
  Sex: Female
  Weight: 77.1 kg

DRUGS (12)
  1. NEXIUM [Suspect]
     Indication: GASTROOESOPHAGEAL REFLUX DISEASE
     Route: 048
     Dates: start: 20040107, end: 201204
  2. NEXIUM [Suspect]
     Indication: GASTROOESOPHAGEAL REFLUX DISEASE
     Route: 048
     Dates: start: 20040501
  3. DEXILANT [Concomitant]
     Indication: GASTROOESOPHAGEAL REFLUX DISEASE
     Dates: start: 20120501, end: 20130427
  4. PREVACID [Concomitant]
     Indication: GASTROOESOPHAGEAL REFLUX DISEASE
     Dates: start: 20030903
  5. PROTONIX [Concomitant]
     Indication: GASTROOESOPHAGEAL REFLUX DISEASE
     Dates: start: 20030104
  6. PEPCID [Concomitant]
     Indication: DYSPEPSIA
  7. PEPTO BISMOL [Concomitant]
     Indication: ABDOMINAL DISCOMFORT
  8. BISOPROLOL HCTZ [Concomitant]
     Indication: BLOOD PRESSURE INCREASED
     Dosage: 5/6.25
  9. TRAZADONE [Concomitant]
     Indication: SLEEP DISORDER
  10. LEXAPRO [Concomitant]
     Indication: DEPRESSION
     Dates: start: 20090607
  11. SIMVASTATIN [Concomitant]
     Indication: BLOOD CHOLESTEROL INCREASED
     Dates: start: 20110922
  12. AMBIEN [Concomitant]

REACTIONS (7)
  - Osteonecrosis [Unknown]
  - Ruptured cerebral aneurysm [Unknown]
  - Osteoporosis [Unknown]
  - Multiple fractures [Unknown]
  - Depression [Unknown]
  - Scoliosis [Unknown]
  - Pain in extremity [Unknown]
